FAERS Safety Report 7024044-9 (Version None)
Quarter: 2010Q4

REPORT INFORMATION
  Report Type: 
  Country: None (occurrence: None)
  Receive Date: 20101001
  Receipt Date: 20100923
  Transmission Date: 20110411
  Serious: Yes (Other)
  Sender: FDA-Public Use
  Company Number: CO-WYE-H17751010

PATIENT
  Sex: Female

DRUGS (4)
  1. RAPAMUNE [Suspect]
     Indication: PROPHYLAXIS AGAINST TRANSPLANT REJECTION
     Route: 048
     Dates: start: 20040101, end: 20100701
  2. RAPAMUNE [Suspect]
     Route: 048
     Dates: start: 20100701
  3. PREDNISOLONE [Suspect]
     Indication: PROPHYLAXIS AGAINST TRANSPLANT REJECTION
     Route: 065
     Dates: start: 20040101, end: 20100101
  4. PREDNISOLONE [Suspect]
     Route: 065
     Dates: start: 20100101

REACTIONS (4)
  - ABDOMINAL PAIN UPPER [None]
  - IMMUNOSUPPRESSANT DRUG LEVEL INCREASED [None]
  - URINARY TRACT INFECTION [None]
  - VISUAL IMPAIRMENT [None]
